FAERS Safety Report 4309376-7 (Version None)
Quarter: 2004Q1

REPORT INFORMATION
  Report Type: 
  Country: None (occurrence: None)
  Receive Date: 20040302
  Receipt Date: 20040212
  Transmission Date: 20041129
  Serious: Yes (Death)
  Sender: FDA-Public Use
  Company Number: JP-ROCHE-358761

PATIENT
  Age: 85 Year
  Sex: Male

DRUGS (2)
  1. ROCEPHIN [Suspect]
     Indication: PNEUMONIA
     Route: 041
     Dates: start: 20040203, end: 20040208
  2. MINOMYCIN [Concomitant]
     Route: 041

REACTIONS (1)
  - INTERSTITIAL LUNG DISEASE [None]
